FAERS Safety Report 9298394 (Version 1)
Quarter: 2013Q2

REPORT INFORMATION
  Report Type: Spontaneous
  Country: FR (occurrence: FR)
  Receive Date: 20130520
  Receipt Date: 20130520
  Transmission Date: 20140414
  Serious: Yes (Hospitalization, Other)
  Sender: FDA-Public Use
  Company Number: FR-PFIZER INC-2013153425

PATIENT
  Age: 74 Year
  Sex: Female

DRUGS (18)
  1. TRIATEC [Suspect]
     Indication: HYPERTENSION
     Dosage: 5 MG, 1X/DAY
     Route: 048
     Dates: start: 20130221, end: 20130312
  2. TRIATEC [Suspect]
     Dosage: 10 MG, 1X/DAY
     Route: 048
     Dates: start: 20130313
  3. MEROPENEM [Suspect]
     Dosage: UNK
     Route: 042
     Dates: start: 20130305, end: 20130318
  4. PREVISCAN [Suspect]
     Dosage: UNK
     Route: 048
     Dates: start: 20130304, end: 20130318
  5. INEXIUM [Suspect]
     Dosage: UNK
     Route: 048
     Dates: end: 20130318
  6. COLIMYCINE [Concomitant]
     Dosage: UNK
     Dates: start: 20130305
  7. NOVONORM [Concomitant]
     Indication: DIABETES MELLITUS
     Dosage: UNK
     Dates: start: 20130312, end: 20130314
  8. SERESTA [Concomitant]
     Dosage: UNK
     Dates: end: 20130224
  9. LOVENOX [Concomitant]
     Dosage: UNK
     Dates: end: 20130312
  10. LASILIX [Concomitant]
     Dosage: UNK
     Dates: start: 20130221, end: 20130311
  11. EUPRESSYL [Concomitant]
     Dosage: UNK
     Dates: end: 20130312
  12. JANUVIA [Concomitant]
     Indication: DIABETES MELLITUS
     Dosage: UNK
     Dates: start: 20130223, end: 20130312
  13. METFORMIN [Concomitant]
     Indication: DIABETES MELLITUS
     Dosage: UNK
     Dates: start: 20130223, end: 20130312
  14. TOPALGIC [Concomitant]
     Dosage: UNK
     Dates: end: 20130306
  15. CARDENSIEL [Concomitant]
     Dosage: UNK
  16. MOTILIUM [Concomitant]
     Dosage: UNK
  17. LEVOTHYROX [Concomitant]
     Indication: HYPOTHYROIDISM
     Dosage: UNK
  18. DIFFU K [Concomitant]
     Dosage: UNK

REACTIONS (3)
  - Rash [Recovered/Resolved]
  - Eosinophilia [Recovered/Resolved]
  - Pancreatic mass [Unknown]
